FAERS Safety Report 15793874 (Version 1)
Quarter: 2019Q1

REPORT INFORMATION
  Report Type: Spontaneous
  Country: GB (occurrence: GB)
  Receive Date: 20190107
  Receipt Date: 20190107
  Transmission Date: 20190417
  Serious: Yes (Other)
  Sender: FDA-Public Use
  Company Number: GB-AMREGENT-20182453

PATIENT
  Age: 42 Year
  Sex: Female

DRUGS (1)
  1. FERINJECT [Suspect]
     Active Substance: FERRIC CARBOXYMALTOSE
     Dosage: 1000 MG
     Route: 042

REACTIONS (6)
  - Hyperaesthesia [Unknown]
  - Metrorrhagia [Unknown]
  - Blister [Unknown]
  - Wound secretion [Unknown]
  - Wound complication [Unknown]
  - Menorrhagia [Unknown]
